FAERS Safety Report 18360900 (Version 1)
Quarter: 2020Q4

REPORT INFORMATION
  Report Type: Report from Study
  Country: IT (occurrence: IT)
  Receive Date: 20201008
  Receipt Date: 20201008
  Transmission Date: 20210114
  Serious: Yes (Hospitalization)
  Sender: FDA-Public Use
  Company Number: IT-PFIZER INC-2020386345

PATIENT
  Age: 90 Year
  Sex: Female

DRUGS (13)
  1. TAVOR (LORAZEPAM) [Suspect]
     Active Substance: LORAZEPAM
     Indication: AGITATION
     Dosage: 8 DROP TOTAL
     Dates: start: 20200918, end: 20200918
  2. FENTANYL. [Concomitant]
     Active Substance: FENTANYL
  3. CARDIOASPIRIN [Concomitant]
     Active Substance: ASPIRIN
  4. DELTACORTENE [Concomitant]
     Active Substance: PREDNISONE
  5. LANSOPRAZOLE. [Concomitant]
     Active Substance: LANSOPRAZOLE
  6. NEBIVOLOL. [Concomitant]
     Active Substance: NEBIVOLOL
  7. OLMESARTAN MEDOXOMIL. [Concomitant]
     Active Substance: OLMESARTAN MEDOXOMIL
  8. MIRTAZAPINE. [Concomitant]
     Active Substance: MIRTAZAPINE
  9. OXYGEN. [Concomitant]
     Active Substance: OXYGEN
  10. ZYLORIC [Concomitant]
     Active Substance: ALLOPURINOL
  11. CITALOPRAM [Concomitant]
     Active Substance: CITALOPRAM HYDROBROMIDE
  12. AMLODIPINE [Concomitant]
     Active Substance: AMLODIPINE BESYLATE
  13. FUROSEMIDE. [Concomitant]
     Active Substance: FUROSEMIDE

REACTIONS (1)
  - Sopor [Not Recovered/Not Resolved]

NARRATIVE: CASE EVENT DATE: 20200919
